FAERS Safety Report 7826155-4 (Version None)
Quarter: 2011Q4

REPORT INFORMATION
  Report Type: 
  Country: None (occurrence: None)
  Receive Date: 20111019
  Receipt Date: 20111009
  Transmission Date: 20120403
  Serious: Yes (Hospitalization)
  Sender: FDA-Public Use
  Company Number: US-BRISTOL-MYERS SQUIBB COMPANY-16163115

PATIENT
  Age: 78 Year
  Sex: Male

DRUGS (8)
  1. ALEVE [Suspect]
     Indication: ABDOMINAL PAIN UPPER
  2. WARFARIN SODIUM [Suspect]
     Indication: CEREBROVASCULAR ACCIDENT PROPHYLAXIS
     Dosage: DISCONTINUED FOR TWO DAYS AND THEN RESTARTED AT A DOSE OF 4 MG DAILY
  3. DABIGATRAN ETEXILATE [Suspect]
     Indication: ATRIAL FIBRILLATION
  4. LISINOPRIL [Suspect]
  5. METOPROLOL TARTRATE [Suspect]
  6. ASPIRIN [Suspect]
  7. FUROSEMIDE [Suspect]
  8. ENOXAPARIN [Suspect]

REACTIONS (3)
  - HAEMOGLOBIN DECREASED [None]
  - GASTROINTESTINAL HAEMORRHAGE [None]
  - HYPOTENSION [None]
